FAERS Safety Report 24716267 (Version 2)
Quarter: 2025Q1

REPORT INFORMATION
  Report Type: Spontaneous
  Country: PT (occurrence: PT)
  Receive Date: 20241210
  Receipt Date: 20250107
  Transmission Date: 20250408
  Serious: Yes (Disabling)
  Sender: BAUSCH AND LOMB
  Company Number: None

PATIENT
  Age: 52 Year
  Sex: Female
  Weight: 60 kg

DRUGS (7)
  1. DEXAMETHASONE [Suspect]
     Active Substance: DEXAMETHASONE
     Indication: Invasive breast carcinoma
     Route: 065
     Dates: start: 20240902
  2. PERJETA [Suspect]
     Active Substance: PERTUZUMAB
     Indication: Invasive breast carcinoma
     Dosage: STRENGTH 420 MG/14 ML, 420 MG EVERY 21 DAYS
     Route: 065
     Dates: start: 20240902
  3. TRASTUZUMAB [Suspect]
     Active Substance: TRASTUZUMAB
     Indication: Invasive breast carcinoma
     Route: 042
     Dates: start: 20240902
  4. GRANISETRON HYDROCHLORIDE [Suspect]
     Active Substance: GRANISETRON HYDROCHLORIDE
     Indication: Invasive breast carcinoma
     Dosage: 2 MG PER OS
     Route: 065
     Dates: start: 20240902
  5. DOCETAXEL [Suspect]
     Active Substance: DOCETAXEL
     Indication: Invasive breast carcinoma
     Route: 042
     Dates: start: 20240902
  6. CARBOPLATIN [Suspect]
     Active Substance: CARBOPLATIN
     Indication: Invasive breast carcinoma
     Route: 065
     Dates: start: 20240902
  7. PEGFILGRASTIM [Suspect]
     Active Substance: PEGFILGRASTIM
     Indication: Invasive breast carcinoma
     Dosage: 6MG SC
     Route: 058
     Dates: start: 20240903

REACTIONS (2)
  - Diarrhoea [Recovered/Resolved]
  - Malaise [Recovered/Resolved]

NARRATIVE: CASE EVENT DATE: 20241110
